FAERS Safety Report 6539954-6 (Version None)
Quarter: 2010Q1

REPORT INFORMATION
  Report Type: 
  Country: None (occurrence: None)
  Receive Date: 20100115
  Receipt Date: 20100106
  Transmission Date: 20100710
  Serious: Yes (Other)
  Sender: FDA-Public Use
  Company Number: PT-ABBOTT-10P-130-0617979-00

PATIENT
  Sex: Male

DRUGS (1)
  1. DEPAKINE CHRONOSPHERE [Suspect]
     Indication: DRUG USE FOR UNKNOWN INDICATION
     Dosage: PROLONGED-RELEASE GRANULES
     Route: 048
     Dates: start: 20090101

REACTIONS (2)
  - HEPATITIS CHOLESTATIC [None]
  - PRODUCT TASTE ABNORMAL [None]
